FAERS Safety Report 7281518-3 (Version None)
Quarter: 2011Q1

REPORT INFORMATION
  Report Type: 
  Country: None (occurrence: None)
  Receive Date: 20110128
  Receipt Date: 20110113
  Transmission Date: 20110831
  Serious: Yes (Death)
  Sender: FDA-Public Use
  Company Number: AUR-APL-2011-00252

PATIENT
  Age: 29 Year
  Sex: Male

DRUGS (3)
  1. RISPERDONE [Suspect]
  2. SERTRALINE [Suspect]
  3. METOPROLOL [Suspect]

REACTIONS (1)
  - COMPLETED SUICIDE [None]
